FAERS Safety Report 5725063-2 (Version None)
Quarter: 2008Q2

REPORT INFORMATION
  Report Type: 
  Country: None (occurrence: None)
  Receive Date: 20080501
  Receipt Date: 20080418
  Transmission Date: 20081010
  Serious: Yes (Hospitalization)
  Sender: FDA-Public Use
  Company Number: FR-AMGEN-US266330

PATIENT
  Sex: Male
  Weight: 80 kg

DRUGS (3)
  1. ENBREL [Suspect]
     Indication: RHEUMATOID ARTHRITIS
     Dosage: 50 MG; FREQUENCY UNSPECIFIED
     Route: 058
     Dates: start: 20070101, end: 20080101
  2. CORTICOSTEROID NOS [Suspect]
     Indication: DRUG USE FOR UNKNOWN INDICATION
     Route: 048
  3. METHOTREXATE SODIUM [Suspect]
     Indication: DRUG USE FOR UNKNOWN INDICATION
     Dosage: 10 MG TOTAL WEEKLY
     Route: 048
     Dates: end: 20080201

REACTIONS (8)
  - ANAEMIA [None]
  - BALANCE DISORDER [None]
  - ENCEPHALITIS FUNGAL [None]
  - LEUKOENCEPHALOPATHY [None]
  - LYMPHOPENIA [None]
  - MEMORY IMPAIRMENT [None]
  - MENINGITIS CRYPTOCOCCAL [None]
  - PSYCHOMOTOR SKILLS IMPAIRED [None]
